FAERS Safety Report 5491344-3 (Version None)
Quarter: 2007Q4

REPORT INFORMATION
  Report Type: 
  Country: None (occurrence: None)
  Receive Date: 20071017
  Receipt Date: 20071005
  Transmission Date: 20080405
  Serious: Yes (Death)
  Sender: FDA-Public Use
  Company Number: 2007S1009679

PATIENT
  Age: 44 Year
  Sex: Female

DRUGS (2)
  1. AMITRIPTYLINE HCL [Suspect]
  2. DIAZEPAM [Suspect]

REACTIONS (5)
  - FOAMING AT MOUTH [None]
  - OESOPHAGEAL DISORDER [None]
  - TONGUE DISORDER [None]
  - VISCERAL CONGESTION [None]
  - VOMITING [None]
